FAERS Safety Report 18039280 (Version 3)
Quarter: 2020Q4

REPORT INFORMATION
  Report Type: Spontaneous
  Country: JP (occurrence: JP)
  Receive Date: 20200718
  Receipt Date: 20201012
  Transmission Date: 20210113
  Serious: Yes (Other)
  Sender: FDA-Public Use
  Company Number: JP-AMGEN-JPNSP2018141383

PATIENT
  Age: 11 Year
  Sex: Male
  Weight: 47 kg

DRUGS (2)
  1. RANMARK [Suspect]
     Active Substance: DENOSUMAB
     Indication: FIBROUS DYSPLASIA OF JAW
     Dosage: 120 MG, DAY0,7,28
     Route: 058
  2. RANMARK [Suspect]
     Active Substance: DENOSUMAB
     Dosage: 120 MG, ONCE EVERY 4 WK
     Route: 058

REACTIONS (5)
  - Hypercalcaemia [Unknown]
  - Off label use [Unknown]
  - Growth retardation [Recovered/Resolved]
  - Hypocalcaemia [Recovered/Resolved]
  - Hypophosphataemia [Recovered/Resolved]
